FAERS Safety Report 7236752-5 (Version None)
Quarter: 2011Q1

REPORT INFORMATION
  Report Type: 
  Country: None (occurrence: None)
  Receive Date: 20110120
  Receipt Date: 20110112
  Transmission Date: 20110831
  Serious: Yes (Hospitalization)
  Sender: FDA-Public Use
  Company Number: US-GILEAD-2010-0033548

PATIENT
  Sex: Female

DRUGS (9)
  1. LASIX [Concomitant]
  2. OXYGEN [Concomitant]
  3. GLIPIZIDE [Concomitant]
  4. LETAIRIS [Suspect]
     Indication: PULMONARY ARTERIAL HYPERTENSION
     Route: 048
     Dates: start: 20100413
  5. SPIRONOLACTONE [Concomitant]
  6. TRAMADOL [Concomitant]
  7. COUMADIN [Concomitant]
  8. AMIODARONE [Concomitant]
  9. AMLODIPINE [Concomitant]

REACTIONS (2)
  - CELLULITIS [None]
  - OEDEMA PERIPHERAL [None]
